FAERS Safety Report 16244308 (Version 4)
Quarter: 2019Q4

REPORT INFORMATION
  Report Type: Spontaneous
  Country: JP (occurrence: JP)
  Receive Date: 20190426
  Receipt Date: 20191220
  Transmission Date: 20200122
  Serious: Yes (Death, Hospitalization)
  Sender: FDA-Public Use
  Company Number: JP-PFIZER INC-2019088488

PATIENT
  Age: 50 Year
  Sex: Male

DRUGS (1)
  1. LORBRENA [Suspect]
     Active Substance: LORLATINIB
     Indication: NON-SMALL CELL LUNG CANCER
     Dosage: 100 MG, DAILY
     Route: 048
     Dates: start: 20190213, end: 201911

REACTIONS (5)
  - Death [Fatal]
  - Hypercholesterolaemia [Not Recovered/Not Resolved]
  - Neoplasm progression [Unknown]
  - Pleural effusion [Recovered/Resolved]
  - Dizziness [Recovered/Resolved]

NARRATIVE: CASE EVENT DATE: 20190215
